FAERS Safety Report 7761312-7 (Version None)
Quarter: 2011Q3

REPORT INFORMATION
  Report Type: 
  Country: None (occurrence: None)
  Receive Date: 20110920
  Receipt Date: 20110916
  Transmission Date: 20111222
  Serious: No
  Sender: FDA-Public Use
  Company Number: US-PFIZER INC-2011220491

PATIENT
  Age: 75 Year
  Sex: Female
  Weight: 53.061 kg

DRUGS (21)
  1. ALBUTEROL [Concomitant]
     Dosage: UNK
  2. LORATADINE [Concomitant]
     Dosage: UNK
  3. HYDROCODONE [Concomitant]
     Dosage: UNK
  4. COLESTYRAMINE [Concomitant]
     Dosage: UNK
  5. LISINOPRIL [Concomitant]
     Dosage: UNK
  6. LORAZEPAM [Concomitant]
     Dosage: UNK
  7. WARFARIN [Concomitant]
     Dosage: UNK
  8. FLAGYL [Suspect]
     Indication: PROPHYLAXIS
     Dosage: 250 MG, EVERY 8 HOURS
     Dates: start: 20110830
  9. POTASSIUM ACETATE [Suspect]
     Dosage: UNK
  10. FAMOTIDINE [Concomitant]
     Dosage: UNK
  11. FLUTICASONE [Concomitant]
     Dosage: UNK
  12. INSULIN [Concomitant]
     Dosage: UNK
  13. ACETAMINOPHEN [Concomitant]
     Dosage: UNK
  14. ENOXAPARIN [Concomitant]
     Dosage: UNK
  15. HYDROCORTISONE [Concomitant]
     Dosage: UNK
  16. PROMETHAZINE [Concomitant]
     Dosage: UNK
  17. OCTREOTIDE [Concomitant]
     Dosage: UNK
  18. DILTIAZEM [Concomitant]
     Dosage: UNK
  19. AMIODARONE [Concomitant]
     Dosage: UNK
  20. CLONAZEPAM [Concomitant]
     Dosage: UNK
  21. METOPROLOL [Concomitant]
     Dosage: UNK

REACTIONS (1)
  - VOMITING [None]
